FAERS Safety Report 16256670 (Version 2)
Quarter: 2019Q2

REPORT INFORMATION
  Report Type: Spontaneous
  Country: DE (occurrence: DE)
  Receive Date: 20190430
  Receipt Date: 20190502
  Transmission Date: 20190711
  Serious: Yes (Other)
  Sender: FDA-Public Use
  Company Number: PHHY2019DE051388

PATIENT
  Age: 15 Year
  Sex: Female
  Weight: 29 kg

DRUGS (5)
  1. APYDAN [OXCARBAZEPINE] [Suspect]
     Active Substance: OXCARBAZEPINE
     Indication: EPILEPSY
     Dosage: 300 MG, BID (12 HOUR)
     Route: 048
  2. LAMOTRIGINE. [Suspect]
     Active Substance: LAMOTRIGINE
     Indication: EPILEPSY
     Dosage: UNK
     Route: 065
  3. ORFIRIL [Suspect]
     Active Substance: VALPROATE SODIUM
     Indication: EPILEPSY
     Dosage: ORAL/PEG
     Route: 048
  4. LEVETIRACETAM. [Concomitant]
     Active Substance: LEVETIRACETAM
     Indication: EPILEPSY
     Dosage: 750 MG, BID
     Route: 065
  5. LEVETIRACETAM. [Concomitant]
     Active Substance: LEVETIRACETAM
     Dosage: 1500 MG (750-0-750), QD
     Route: 065

REACTIONS (6)
  - Drug ineffective [Unknown]
  - Screaming [Unknown]
  - Vomiting [Recovering/Resolving]
  - Nausea [Recovering/Resolving]
  - Salivary hypersecretion [Recovered/Resolved]
  - Respiration abnormal [Recovered/Resolved]

NARRATIVE: CASE EVENT DATE: 20190129
